FAERS Safety Report 17610416 (Version 2)
Quarter: 2020Q2

REPORT INFORMATION
  Report Type: Spontaneous
  Country: US (occurrence: US)
  Receive Date: 20200401
  Receipt Date: 20200508
  Transmission Date: 20200713
  Serious: No
  Sender: FDA-Public Use
  Company Number: US-PFIZER INC-2020131430

PATIENT
  Age: 36 Year
  Sex: Male
  Weight: 90.72 kg

DRUGS (1)
  1. ADVIL [Suspect]
     Active Substance: IBUPROFEN
     Indication: PAIN
     Dosage: UNK, AS NEEDED [1 OR 2 MG TABLET BY MOUTH EVERY 4-5 HOURS AS NEEDED FOR THE PAINS]
     Route: 048
     Dates: start: 20200326

REACTIONS (3)
  - Drug ineffective [Unknown]
  - Pain [Unknown]
  - Intentional overdose [Unknown]
